FAERS Safety Report 5894045-2 (Version None)
Quarter: 2008Q3

REPORT INFORMATION
  Report Type: 
  Country: None (occurrence: None)
  Receive Date: 20080923
  Receipt Date: 20080915
  Transmission Date: 20090109
  Serious: Yes (Hospitalization)
  Sender: FDA-Public Use
  Company Number: US-ELI_LILLY_AND_COMPANY-US200809003183

PATIENT
  Sex: Female

DRUGS (4)
  1. HUMALOG [Suspect]
  2. HUMULIN 70/30 [Suspect]
  3. LANTUS [Concomitant]
  4. GLUCOPHAGE [Concomitant]

REACTIONS (7)
  - BACK PAIN [None]
  - EATING DISORDER [None]
  - GASTRIC DISORDER [None]
  - LOCALISED INFECTION [None]
  - MENTAL DISORDER [None]
  - RENAL IMPAIRMENT [None]
  - SCAB [None]
